FAERS Safety Report 23152526 (Version 1)
Quarter: 2023Q4

REPORT INFORMATION
  Report Type: Other
  Country: US (occurrence: None)
  Receive Date: 20231107
  Receipt Date: 20231107
  Transmission Date: 20240110
  Serious: Yes (Other)
  Sender: FDA-Public Use
  Company Number: US-ROCHE-3451929

PATIENT
  Age: 47 Year
  Sex: Female

DRUGS (1)
  1. ROZLYTREK [Suspect]
     Active Substance: ENTRECTINIB
     Indication: Bronchial carcinoma
     Dosage: TAKE 3 CAPSULE(S) BY MOUTH ONE TIME A DAY
     Route: 048

REACTIONS (1)
  - Metastases to central nervous system [Unknown]
